FAERS Safety Report 11392705 (Version 2)
Quarter: 2015Q3

REPORT INFORMATION
  Report Type: Spontaneous
  Country: US (occurrence: US)
  Receive Date: 20150818
  Receipt Date: 20150929
  Transmission Date: 20151125
  Serious: Yes (Hospitalization, Other)
  Sender: FDA-Public Use
  Company Number: US-MEDA-2015080025

PATIENT
  Age: 40 Year
  Sex: Male
  Weight: 75 kg

DRUGS (5)
  1. FELBAMATE. [Suspect]
     Active Substance: FELBAMATE
     Indication: EPILEPSY
     Dosage: 400MG IN AM, 600MG AT NOON, 600MG AT NIGHT
     Route: 048
     Dates: start: 20150811
  2. FELBAMATE. [Suspect]
     Active Substance: FELBAMATE
     Indication: EPILEPSY
     Route: 048
     Dates: start: 20150611, end: 201508
  3. VIMPAT [Suspect]
     Active Substance: LACOSAMIDE
     Indication: EPILEPSY
  4. FELBAMATE. [Suspect]
     Active Substance: FELBAMATE
     Indication: EPILEPSY
     Dosage: 600MG IN AM, 800MG AT NOON, 800MG AT NIGHT
     Route: 048
     Dates: start: 201508, end: 20150810
  5. FELBAMATE. [Suspect]
     Active Substance: FELBAMATE
     Indication: EPILEPSY
     Route: 048
     Dates: start: 201505, end: 2015

REACTIONS (7)
  - Seizure [Unknown]
  - Headache [Not Recovered/Not Resolved]
  - Pneumonia aspiration [Recovering/Resolving]
  - Vomiting [Unknown]
  - Somnolence [Unknown]
  - Confusional state [Unknown]
  - Overdose [Unknown]

NARRATIVE: CASE EVENT DATE: 2015
